FAERS Safety Report 22989571 (Version 2)
Quarter: 2024Q1

REPORT INFORMATION
  Report Type: Spontaneous
  Country: DE (occurrence: DE)
  Receive Date: 20230927
  Receipt Date: 20240207
  Transmission Date: 20240410
  Serious: Yes (Hospitalization)
  Sender: FDA-Public Use
  Company Number: DE-DCGMA-23201835

PATIENT
  Age: 67 Year
  Sex: Female
  Weight: 105 kg

DRUGS (10)
  1. METFORMIN [Suspect]
     Active Substance: METFORMIN HYDROCHLORIDE
     Indication: Type 2 diabetes mellitus
     Dosage: 2X1000MG USE FOR MANY WEEKS
     Route: 048
  2. SITAGLIPTIN [Suspect]
     Active Substance: SITAGLIPTIN
     Indication: Type 2 diabetes mellitus
     Dosage: 2X50MG USE FOR MANY WEEKS.
     Route: 048
  3. GABAPENTIN [Concomitant]
     Active Substance: GABAPENTIN
     Indication: Dysaesthesia
     Dosage: 4X600MG
     Route: 048
  4. RAMIPRIL [Concomitant]
     Active Substance: RAMIPRIL
     Indication: Hypertension
     Dosage: 1X2.5MG
     Route: 048
  5. METHIONINE [Concomitant]
     Active Substance: METHIONINE
     Indication: Bacteriuria
     Dosage: 3X500MG
     Route: 048
  6. MIRTAZAPINE [Concomitant]
     Active Substance: MIRTAZAPINE
     Indication: Apathy
     Dosage: MIRTAZAPIN/ESCITALOPRAM 30/20MG
     Route: 048
  7. ESCITALOPRAM [Concomitant]
     Active Substance: ESCITALOPRAM OXALATE
     Indication: Apathy
     Dosage: MIRTAZAPIN/ESCITALOPRAM 30/20MG
     Route: 048
  8. METOPROLOL [Concomitant]
     Active Substance: METOPROLOL
     Indication: Tachycardia
     Dosage: 2X47.5MG
     Route: 048
  9. ESOMEPRAZOLE [Concomitant]
     Active Substance: ESOMEPRAZOLE
     Indication: Prophylaxis against gastrointestinal ulcer
     Dosage: 1X40MG
     Route: 048
  10. FUROSEMIDE [Concomitant]
     Active Substance: FUROSEMIDE
     Indication: Oedema
     Dosage: 4X30MG
     Route: 048

REACTIONS (2)
  - Pyrexia [Recovered/Resolved]
  - Blood lactic acid increased [Recovered/Resolved]

NARRATIVE: CASE EVENT DATE: 20230621
